FAERS Safety Report 5511434-6 (Version None)
Quarter: 2007Q4

REPORT INFORMATION
  Report Type: 
  Country: None (occurrence: None)
  Receive Date: 20071109
  Receipt Date: 20071030
  Transmission Date: 20080405
  Serious: Yes (Other)
  Sender: FDA-Public Use
  Company Number: US-JNJFOC-20071100142

PATIENT
  Sex: Female
  Weight: 52.98 kg

DRUGS (10)
  1. FENTANYL TRANSDERMAL SYSTEM [Suspect]
     Indication: PAIN
     Dosage: 2X 75UG/HR PATCHES
     Route: 062
  2. FENTANYL TRANSDERMAL SYSTEM [Suspect]
     Indication: PAIN
     Route: 062
  3. DURAGESIC-100 [Suspect]
     Indication: PAIN
     Route: 062
  4. VIACTIV [Concomitant]
     Indication: BLOOD CALCIUM
     Route: 048
  5. GLYCOLAX [Concomitant]
     Indication: CONSTIPATION
     Route: 048
  6. HYDROMORPHONE HCL [Concomitant]
     Indication: PAIN
     Route: 048
  7. MECLIZINE [Concomitant]
     Indication: NAUSEA
     Dosage: HALF A 25MG TABLET
     Route: 048
  8. RITALIN [Concomitant]
     Dosage: AT 4 PM
     Route: 048
  9. RITALIN [Concomitant]
     Indication: FATIGUE
     Route: 048
  10. DIAZEPAM [Concomitant]
     Indication: SLEEP DISORDER
     Dosage: AT NIGHT
     Route: 048

REACTIONS (10)
  - BLOOD PRESSURE INCREASED [None]
  - DRUG ADMINISTERED AT INAPPROPRIATE SITE [None]
  - FATIGUE [None]
  - GASTROOESOPHAGEAL REFLUX DISEASE [None]
  - MIGRAINE [None]
  - NAUSEA [None]
  - NEURALGIA [None]
  - OESOPHAGEAL SPASM [None]
  - SLEEP DISORDER [None]
  - WRONG TECHNIQUE IN DRUG USAGE PROCESS [None]
